FAERS Safety Report 12984648 (Version 5)
Quarter: 2017Q1

REPORT INFORMATION
  Report Type: Report from Study
  Country: JP (occurrence: JP)
  Receive Date: 20161129
  Receipt Date: 20170216
  Transmission Date: 20170428
  Serious: Yes (Hospitalization)
  Sender: FDA-Public Use
  Company Number: JP-EISAI MEDICAL RESEARCH-EC-2016-022797

PATIENT
  Age: 72 Year
  Sex: Male
  Weight: 73 kg

DRUGS (11)
  1. FINIBAX [Concomitant]
     Active Substance: DORIPENEM MONOHYDRATE
  2. LOXOPROFEN [Concomitant]
     Active Substance: LOXOPROFEN
  3. NEXIUM [Concomitant]
     Active Substance: ESOMEPRAZOLE MAGNESIUM
  4. ALLOPURINOL. [Concomitant]
     Active Substance: ALLOPURINOL
  5. HALAVEN [Suspect]
     Active Substance: ERIBULIN MESYLATE
     Indication: PLEOMORPHIC LIPOSARCOMA
     Route: 041
     Dates: start: 20160928, end: 20161011
  6. WARFARIN [Concomitant]
     Active Substance: WARFARIN
  7. MAGNESIUM OXIDE. [Concomitant]
     Active Substance: MAGNESIUM OXIDE
  8. OXINORM [Concomitant]
     Active Substance: OXYCODONE HYDROCHLORIDE
  9. CIPROXAN [Concomitant]
     Active Substance: CIPROFLOXACIN
  10. OXYCONTIN [Concomitant]
     Active Substance: OXYCODONE HYDROCHLORIDE
  11. AMLODIPINE [Concomitant]
     Active Substance: AMLODIPINE BESYLATE

REACTIONS (1)
  - Interstitial lung disease [Recovering/Resolving]

NARRATIVE: CASE EVENT DATE: 20161028
